FAERS Safety Report 4727117-6 (Version None)
Quarter: 2005Q3

REPORT INFORMATION
  Report Type: 
  Country: None (occurrence: None)
  Receive Date: 20050726
  Receipt Date: 20050726
  Transmission Date: 20060218
  Serious: Yes (Hospitalization)
  Sender: FDA-Public Use
  Company Number: None

PATIENT
  Age: 69 Year
  Sex: Male
  Weight: 67.586 kg

DRUGS (7)
  1. CETUXIMAB 250 MG/M2 [Suspect]
     Indication: HEPATIC NEOPLASM MALIGNANT
     Dosage: WEEKLY IV 60 MINS
     Route: 042
     Dates: start: 20050612, end: 20050719
  2. LASIX [Concomitant]
  3. SPIRONOLACTONE [Concomitant]
  4. COLACE [Concomitant]
  5. OXYCODONE [Concomitant]
  6. FINASTERIDE [Concomitant]
  7. HUMALOG [Concomitant]

REACTIONS (6)
  - ABDOMINAL DISTENSION [None]
  - ASCITES [None]
  - CONFUSIONAL STATE [None]
  - CONSTIPATION [None]
  - DYSPNOEA [None]
  - HEPATIC ENCEPHALOPATHY [None]
